FAERS Safety Report 8098654-4 (Version None)
Quarter: 2012Q1

REPORT INFORMATION
  Report Type: 
  Country: None (occurrence: None)
  Receive Date: 20120129
  Receipt Date: 20111020
  Transmission Date: 20120608
  Serious: No
  Sender: FDA-Public Use
  Company Number: US-ABBOTT-11P-163-0867697-00

PATIENT
  Sex: Female
  Weight: 59.02 kg

DRUGS (3)
  1. PLAQUENIL [Concomitant]
     Indication: JUVENILE ARTHRITIS
  2. HUMIRA [Suspect]
     Indication: JUVENILE ARTHRITIS
     Dates: start: 20110501, end: 20111001
  3. METHOTREXATE [Concomitant]
     Indication: JUVENILE ARTHRITIS

REACTIONS (2)
  - DRUG EFFECT DECREASED [None]
  - PAIN [None]
